FAERS Safety Report 8449462-3 (Version None)
Quarter: 2012Q2

REPORT INFORMATION
  Report Type: 
  Country: None (occurrence: None)
  Receive Date: 20120619
  Receipt Date: 20120605
  Transmission Date: 20120825
  Serious: Yes (Other)
  Sender: FDA-Public Use
  Company Number: CH-FRI-1000031476

PATIENT
  Age: 63 Year
  Sex: Female

DRUGS (5)
  1. SPIRIVA [Concomitant]
  2. ESCITALOPRAM [Concomitant]
  3. PANTOPRAZOLE [Concomitant]
  4. SYMBICORT [Concomitant]
  5. ROFLUMILAST [Suspect]
     Indication: CHRONIC OBSTRUCTIVE PULMONARY DISEASE
     Dosage: 500 MCG
     Route: 048
     Dates: start: 20120414, end: 20120530

REACTIONS (9)
  - HEART RATE INCREASED [None]
  - BLOOD PRESSURE DECREASED [None]
  - DEPRESSION [None]
  - INSOMNIA [None]
  - RASH [None]
  - WEIGHT DECREASED [None]
  - DECREASED APPETITE [None]
  - NAUSEA [None]
  - DIARRHOEA [None]
